FAERS Safety Report 8824529 (Version 1)
Quarter: 2012Q4

REPORT INFORMATION
  Report Type: 
  Country: US (occurrence: US)
  Receive Date: 20121004
  Receipt Date: 20121004
  Transmission Date: 20130627
  Serious: Yes (Other)
  Sender: FDA-Public Use
  Company Number: US-JNJFOC-20120912322

PATIENT
  Age: 77 Year
  Sex: Male

DRUGS (12)
  1. ZYRTEC IR [Suspect]
     Route: 048
  2. ZYRTEC IR [Suspect]
     Indication: MULTIPLE ALLERGIES
     Dosage: daily for about 5 years
     Route: 048
     Dates: end: 20120912
  3. METOPROLOL [Concomitant]
     Indication: PRODUCT USED FOR UNKNOWN INDICATION
     Route: 065
  4. PRILOSEC [Concomitant]
     Indication: ABDOMINAL DISCOMFORT
     Dosage: 10 years
     Route: 065
  5. FLUOXETINE [Concomitant]
     Indication: ANXIETY
     Dosage: 20 years
     Route: 065
  6. CELEBREX [Concomitant]
     Indication: ARTHRITIS
     Dosage: 10 years
     Route: 065
  7. COUMADIN [Concomitant]
     Indication: ANTICOAGULANT THERAPY
     Dosage: half tablet daily over 3 years and sometimes whole tablet as prescribed by doctor
     Route: 065
  8. DILTIAZEM [Concomitant]
     Indication: HEART RATE
     Dosage: over 3 years
     Route: 065
  9. ZETIA [Concomitant]
     Indication: BLOOD CHOLESTEROL INCREASED
     Dosage: over 3 years
     Route: 065
  10. MULTIVITAMINS [Concomitant]
     Indication: MEDICAL DIET
     Dosage: 2 years
     Route: 065
  11. ASPIRIN [Concomitant]
     Indication: PROPHYLAXIS
     Dosage: over 3 years
     Route: 065
  12. ASPIRIN [Concomitant]
     Indication: ANTICOAGULANT THERAPY
     Dosage: over 3 years
     Route: 065

REACTIONS (4)
  - Withdrawal syndrome [Not Recovered/Not Resolved]
  - Pruritus [Not Recovered/Not Resolved]
  - Drug administered to patient of inappropriate age [Unknown]
  - Off label use [Unknown]
